FAERS Safety Report 6247981-1 (Version None)
Quarter: 2009Q2

REPORT INFORMATION
  Report Type: 
  Country: None (occurrence: None)
  Receive Date: 20090626
  Receipt Date: 20090619
  Transmission Date: 20091009
  Serious: Yes (Hospitalization, Other)
  Sender: FDA-Public Use
  Company Number: SV-ABBOTT-09P-050-0578230-00

PATIENT
  Sex: Female
  Weight: 63.56 kg

DRUGS (3)
  1. HUMIRA [Suspect]
     Indication: RHEUMATOID ARTHRITIS
     Route: 058
     Dates: start: 20070228, end: 20090515
  2. METHOTREXATE [Suspect]
     Indication: RHEUMATOID ARTHRITIS
  3. PREDNISONE TAB [Suspect]
     Indication: RHEUMATOID ARTHRITIS
     Route: 048

REACTIONS (6)
  - ANAEMIA [None]
  - CONFUSIONAL STATE [None]
  - DISORIENTATION [None]
  - MAJOR DEPRESSION [None]
  - UTERINE POLYP [None]
  - VAGINAL HAEMORRHAGE [None]
